FAERS Safety Report 4530521-2 (Version None)
Quarter: 2004Q4

REPORT INFORMATION
  Report Type: 
  Country: None (occurrence: None)
  Receive Date: 20041216
  Receipt Date: 20041206
  Transmission Date: 20050328
  Serious: Yes (Hospitalization, Other)
  Sender: FDA-Public Use
  Company Number: HQWYE766806DEC04

PATIENT
  Age: 83 Year
  Sex: Male

DRUGS (7)
  1. CORDARONE [Suspect]
     Indication: ARRHYTHMIA
     Dosage: 200 MG 5X PER 1 WK ORAL
     Route: 048
  2. IRBESARTAN [Suspect]
     Indication: HYPERTENSION
     Dosage: 150 MG 1X PER 1 DAY ORAL
     Route: 048
  3. PAROXETINE HCL [Suspect]
     Indication: DYSTHYMIC DISORDER
     Dosage: 10 MG 1X PER 1 DAY ORAL
     Route: 048
  4. DIGOXIN [Suspect]
     Indication: ARRHYTHMIA
     Dosage: 1 DF DAILY ORAL
     Route: 048
  5. LASIX [Suspect]
     Indication: HYPERTENSION
     Dosage: 20 MG 1X PER 1 DAY ORAL
     Route: 048
  6. PREVISCAN (FLUINDIONE,) [Suspect]
     Dosage: SEE IMAGE
     Route: 048
     Dates: end: 20040901
  7. PREVISCAN (FLUINDIONE,) [Suspect]
     Dosage: SEE IMAGE
     Route: 048
     Dates: start: 20040101

REACTIONS (3)
  - DRUG INTERACTION [None]
  - OVERDOSE [None]
  - PROTHROMBIN TIME PROLONGED [None]
